FAERS Safety Report 8825845 (Version 1)
Quarter: 2012Q4

REPORT INFORMATION
  Report Type: 
  Country: US (occurrence: US)
  Receive Date: 20121004
  Receipt Date: 20121004
  Transmission Date: 20130627
  Serious: No
  Sender: FDA-Public Use
  Company Number: US-VERTEX PHARMACEUTICAL INC.-2012-021688

PATIENT
  Age: 63 Year
  Sex: Female
  Weight: 77 kg

DRUGS (9)
  1. VX-950 [Suspect]
     Indication: HEPATITIS C
     Dosage: 750 mg, tid
     Route: 048
  2. PEGASYS [Suspect]
     Indication: HEPATITIS C
     Dosage: 180 ?g, UNK
  3. RIBAPAK [Suspect]
     Indication: HEPATITIS C
     Dosage: 600 mg, qd
  4. DIOVAN [Concomitant]
     Dosage: 160 mg, UNK
  5. AMLODIPINE [Concomitant]
     Dosage: 2.5 mg, UNK
  6. IRON [Concomitant]
  7. POTASSIUM [Concomitant]
     Dosage: 75 mg, UNK
  8. MULTIVITAMIN                       /00097801/ [Concomitant]
  9. FISH OIL [Concomitant]
     Dosage: 1000 mg, UNK

REACTIONS (4)
  - Decreased appetite [Unknown]
  - Asthenia [Unknown]
  - Nausea [Unknown]
  - Dysgeusia [Unknown]
